FAERS Safety Report 7585464-7 (Version None)
Quarter: 2011Q3

REPORT INFORMATION
  Report Type: 
  Country: None (occurrence: None)
  Receive Date: 20110701
  Receipt Date: 20110622
  Transmission Date: 20111222
  Serious: Yes (Hospitalization)
  Sender: FDA-Public Use
  Company Number: US-BAYER-201031060NA

PATIENT
  Age: 21 Year
  Sex: Female
  Weight: 63 kg

DRUGS (1)
  1. YAZ [Suspect]
     Indication: PREMENSTRUAL SYNDROME
     Dosage: UNK
     Route: 048
     Dates: start: 20070801, end: 20100101

REACTIONS (5)
  - INJURY [None]
  - BILIARY COLIC [None]
  - CHOLECYSTECTOMY [None]
  - PAIN [None]
  - CHOLELITHIASIS [None]
